FAERS Safety Report 7209326-X (Version None)
Quarter: 2011Q1

REPORT INFORMATION
  Report Type: 
  Country: None (occurrence: None)
  Receive Date: 20110104
  Receipt Date: 20101228
  Transmission Date: 20110831
  Serious: Yes (Hospitalization)
  Sender: FDA-Public Use
  Company Number: DE-ROCHE-751060

PATIENT
  Sex: Female
  Weight: 73 kg

DRUGS (9)
  1. CYCLOPHOSPHAMIDE [Suspect]
     Indication: BREAST CANCER
     Route: 042
     Dates: start: 20091022, end: 20091223
  2. METOPROLOL SUCCINATE [Concomitant]
  3. TRASTUZUMAB [Suspect]
     Dosage: MAINTENANCE DOSE, THERAPY DISCONTINUED
     Route: 065
     Dates: start: 20100202, end: 20101116
  4. TAXOTERE [Suspect]
     Indication: BREAST CANCER
     Route: 042
     Dates: start: 20100113, end: 20100407
  5. ASPIRIN [Concomitant]
  6. RAMIPRIL [Concomitant]
  7. TRASTUZUMAB [Suspect]
     Indication: BREAST CANCER
     Dosage: LOADING DOSE
     Route: 065
     Dates: start: 20100113
  8. DOXORUBICIN [Suspect]
     Indication: BREAST CANCER
     Route: 042
     Dates: start: 20091022, end: 20091223
  9. CLOPIDOGREL [Concomitant]

REACTIONS (1)
  - MYOCARDIAL INFARCTION [None]
